FAERS Safety Report 5370766-5 (Version None)
Quarter: 2007Q2

REPORT INFORMATION
  Report Type: 
  Country: None (occurrence: None)
  Receive Date: 20070626
  Receipt Date: 20070621
  Transmission Date: 20071010
  Serious: Yes (Death, Hospitalization)
  Sender: FDA-Public Use
  Company Number: A0659242A

PATIENT
  Age: 76 Year
  Sex: Male

DRUGS (8)
  1. COREG [Suspect]
     Dosage: 37.5MG TWICE PER DAY
     Route: 048
     Dates: start: 20030101
  2. LISINOPRIL [Concomitant]
  3. VYTORIN [Concomitant]
  4. MAXZIDE [Concomitant]
  5. PROTONIX [Concomitant]
  6. PHENERGAN HCL [Concomitant]
  7. INSULIN [Concomitant]
  8. COUMADIN [Concomitant]

REACTIONS (4)
  - ASCITES [None]
  - DEATH [None]
  - DIZZINESS [None]
  - OEDEMA [None]
